FAERS Safety Report 8473705-3 (Version None)
Quarter: 2012Q2

REPORT INFORMATION
  Report Type: 
  Country: None (occurrence: None)
  Receive Date: 20120628
  Receipt Date: 20110915
  Transmission Date: 20120825
  Serious: No
  Sender: FDA-Public Use
  Company Number: US-MYLANLABS-2011S1019380

PATIENT
  Age: 41 Year
  Sex: Male

DRUGS (3)
  1. DILANTIN [Concomitant]
     Route: 048
  2. CLOZAPINE [Suspect]
     Indication: PSYCHOTIC DISORDER
     Route: 048
     Dates: start: 20110704
  3. DIVALPROEX SODIUM EXTENDED RELEASE [Suspect]
     Indication: PSYCHOTIC DISORDER
     Route: 048
     Dates: start: 20101101

REACTIONS (1)
  - AMMONIA INCREASED [None]
